FAERS Safety Report 4800526-2 (Version None)
Quarter: 2005Q4

REPORT INFORMATION
  Report Type: 
  Country: None (occurrence: None)
  Receive Date: 20051013
  Receipt Date: 20050926
  Transmission Date: 20060501
  Serious: Yes (Hospitalization)
  Sender: FDA-Public Use
  Company Number: EWC050945644

PATIENT
  Age: 44 Year
  Sex: Female
  Weight: 43 kg

DRUGS (2)
  1. OLANZAPINE [Suspect]
     Indication: MANIA
     Dosage: 10 MG/1 DAY
     Dates: start: 20050720
  2. DEPAKENE [Concomitant]

REACTIONS (16)
  - ALANINE AMINOTRANSFERASE INCREASED [None]
  - ANAEMIA [None]
  - ASPARTATE AMINOTRANSFERASE INCREASED [None]
  - BIPOLAR I DISORDER [None]
  - COMMUNICATION DISORDER [None]
  - DELUSION [None]
  - DISTRACTIBILITY [None]
  - ELEVATED MOOD [None]
  - IRRITABILITY [None]
  - LIVER DISORDER [None]
  - MANIA [None]
  - METABOLIC DISORDER [None]
  - NEUTROPHIL COUNT INCREASED [None]
  - PLATELET COUNT INCREASED [None]
  - PSYCHOMOTOR HYPERACTIVITY [None]
  - RED BLOOD CELL ABNORMALITY [None]
